FAERS Safety Report 4662209-1 (Version None)
Quarter: 2005Q2

REPORT INFORMATION
  Report Type: 
  Country: None (occurrence: None)
  Receive Date: 20050512
  Receipt Date: 20050428
  Transmission Date: 20051028
  Serious: Yes (Death, Hospitalization)
  Sender: FDA-Public Use
  Company Number: 2005BI001679

PATIENT
  Sex: Female

DRUGS (13)
  1. AVONEX [Suspect]
     Indication: MULTIPLE SCLEROSIS
     Dosage: 30 UG; IM
     Route: 030
     Dates: start: 19970101, end: 20031208
  2. NEXIUM [Concomitant]
  3. ACTONEL [Concomitant]
  4. BACLOFEN [Concomitant]
  5. DIAZEPAM [Concomitant]
  6. NEURONTIN [Concomitant]
  7. POTASSIUM CHLORIDE [Concomitant]
  8. ZONALON [Concomitant]
  9. HYDROCODONE BITARTRATE [Concomitant]
  10. DETROL [Concomitant]
  11. SULFAMETH [Concomitant]
  12. LASIX [Concomitant]
  13. CRYSTALLINE VIT B12 INJ [Concomitant]

REACTIONS (6)
  - CEREBRAL DISORDER [None]
  - DRUG INEFFECTIVE [None]
  - DYSPHAGIA [None]
  - MULTIPLE SCLEROSIS [None]
  - OPTIC NEURITIS [None]
  - RESPIRATORY FAILURE [None]
